FAERS Safety Report 4285783-6 (Version None)
Quarter: 2004Q1

REPORT INFORMATION
  Report Type: 
  Country: None (occurrence: None)
  Receive Date: 20040203
  Receipt Date: 20040119
  Transmission Date: 20041129
  Serious: Yes (Hospitalization)
  Sender: FDA-Public Use
  Company Number: 20040001USST

PATIENT
  Age: 69 Year
  Sex: Male

DRUGS (7)
  1. PROCARBAZINE HYDROCHLORIDE [Suspect]
     Indication: HODGKIN'S DISEASE
     Dosage: 100 MG
     Dates: start: 20030103, end: 20030116
  2. BELUSTINE [Concomitant]
  3. DEPAKENE [Concomitant]
  4. ANTALVIC [Concomitant]
  5. CLAFORAN [Concomitant]
  6. NATULAN [Concomitant]
  7. ONCOVIN [Concomitant]

REACTIONS (1)
  - TOXIC EPIDERMAL NECROLYSIS [None]
